FAERS Safety Report 4953773-3 (Version None)
Quarter: 2006Q1

REPORT INFORMATION
  Report Type: 
  Country: None (occurrence: None)
  Receive Date: 20060324
  Receipt Date: 20060324
  Transmission Date: 20060701
  Serious: Yes (Other)
  Sender: FDA-Public Use
  Company Number: None

PATIENT
  Sex: Male
  Weight: 71.2147 kg

DRUGS (5)
  1. LASIX [Suspect]
     Indication: CAROTID ARTERY DISEASE
     Dosage: 20 MG QD PO
     Route: 048
     Dates: start: 20060121
  2. LASIX [Suspect]
     Indication: CORONARY ARTERY SURGERY
     Dosage: 20 MG QD PO
     Route: 048
     Dates: start: 20060121
  3. LASIX [Suspect]
     Indication: HYPERCHOLESTEROLAEMIA
     Dosage: 20 MG QD PO
     Route: 048
     Dates: start: 20060121
  4. LASIX [Suspect]
     Indication: MITRAL VALVE REPLACEMENT
     Dosage: 20 MG QD PO
     Route: 048
     Dates: start: 20060121
  5. LASIX [Suspect]
     Indication: TRICUSPID VALVE REPAIR
     Dosage: 20 MG QD PO
     Route: 048
     Dates: start: 20060121

REACTIONS (1)
  - DIZZINESS [None]
